FAERS Safety Report 7932323-3 (Version None)
Quarter: 2011Q4

REPORT INFORMATION
  Report Type: 
  Country: None (occurrence: None)
  Receive Date: 20111121
  Receipt Date: 20111116
  Transmission Date: 20120403
  Serious: Yes (Other)
  Sender: FDA-Public Use
  Company Number: CA-MERCK-1111USA02290

PATIENT
  Age: 72 Year
  Sex: Female

DRUGS (1)
  1. JANUVIA [Suspect]
     Indication: DIABETES MELLITUS
     Route: 048
     Dates: start: 20111101, end: 20111107

REACTIONS (5)
  - DIPLOPIA [None]
  - EYE PRURITUS [None]
  - VISION BLURRED [None]
  - BLINDNESS [None]
  - LACRIMATION INCREASED [None]
